FAERS Safety Report 24697335 (Version 1)
Quarter: 2024Q4

REPORT INFORMATION
  Report Type: Spontaneous
  Country: HU (occurrence: HU)
  Receive Date: 20241204
  Receipt Date: 20241204
  Transmission Date: 20250115
  Serious: Yes (Other)
  Sender: AMGEN
  Company Number: HU-AMGEN-HUNSP2024236140

PATIENT
  Age: 71 Year
  Sex: Female

DRUGS (2)
  1. PROLIA [Suspect]
     Active Substance: DENOSUMAB
     Indication: Erdheim-Chester disease
     Dosage: UNK
     Route: 065
  2. PEGYLATED INTERFERON ALPHA NOS [Concomitant]
     Active Substance: PEGINTERFERON ALFA-2A OR PEGINTERFERON ALFA-2B
     Indication: Erdheim-Chester disease

REACTIONS (3)
  - Renal impairment [Unknown]
  - Drug effective for unapproved indication [Unknown]
  - Off label use [Unknown]
